FAERS Safety Report 17875863 (Version 1)
Quarter: 2020Q2

REPORT INFORMATION
  Report Type: Spontaneous
  Country: US (occurrence: US)
  Receive Date: 20200609
  Receipt Date: 20200609
  Transmission Date: 20200714
  Serious: Yes (Life-Threatening)
  Sender: FDA-Public Use
  Company Number: None

PATIENT
  Age: 59 Year
  Sex: Male
  Weight: 125.1 kg

DRUGS (8)
  1. PROPOFOL. [Concomitant]
     Active Substance: PROPOFOL
  2. OXYCODONE [Concomitant]
     Active Substance: OXYCODONE
  3. REMDESIVIR. [Suspect]
     Active Substance: REMDESIVIR
     Indication: COVID-19
     Route: 042
     Dates: start: 20200605
  4. HYDROMORPHONE [Concomitant]
     Active Substance: HYDROMORPHONE
  5. CLONAZEPAM. [Concomitant]
     Active Substance: CLONAZEPAM
  6. HEPARIN [Concomitant]
     Active Substance: HEPARIN SODIUM
  7. INSULIN REGULAR [Concomitant]
     Active Substance: INSULIN NOS
  8. MIDAZOLAM. [Concomitant]
     Active Substance: MIDAZOLAM

REACTIONS (4)
  - Acute respiratory distress syndrome [None]
  - Cardio-respiratory arrest [None]
  - Pulse absent [None]
  - Cardiac arrest [None]

NARRATIVE: CASE EVENT DATE: 20200609
